FAERS Safety Report 7501476-3 (Version None)
Quarter: 2011Q2

REPORT INFORMATION
  Report Type: 
  Country: None (occurrence: None)
  Receive Date: 20110524
  Receipt Date: 20091204
  Transmission Date: 20111010
  Serious: Yes (Hospitalization, Other)
  Sender: FDA-Public Use
  Company Number: US-BAYER-2011-008281

PATIENT
  Age: 73 Year
  Sex: Male
  Weight: 136 kg

DRUGS (32)
  1. GLUCOVANCE [Concomitant]
     Dosage: 5/500
     Route: 048
  2. ACETYLSALICYLIC ACID SRT [Concomitant]
     Dosage: 325 MG, QD
     Route: 048
  3. MORPHINE SULFATE [Concomitant]
     Dosage: 2 MG/ML, UNK
     Route: 042
     Dates: start: 20050420
  4. HEPARIN [Concomitant]
     Dosage: 5000 U, UNK
     Route: 042
     Dates: start: 20050420
  5. CARDIZEM [Concomitant]
     Dosage: 240 MG, QD
     Route: 048
  6. ALBUMIN (HUMAN) [Concomitant]
     Dosage: UNK
     Dates: start: 20050420
  7. LIDOCAINE [Concomitant]
     Dosage: 100 MG, UNK
     Route: 042
     Dates: start: 20050420
  8. PAPAVERINE [Concomitant]
     Dosage: 4 ML, UNK
     Route: 042
     Dates: start: 20050420
  9. TRASYLOL [Suspect]
     Indication: CARDIAC OPERATION
     Dosage: 1ML INITIAL TEST DOSE, 200ML PRIME, 500CC/HOUR INFUSION
     Route: 042
     Dates: start: 20050420, end: 20050420
  10. LANTUS [Concomitant]
     Dosage: SLIDING SCALE
  11. NITROGLYCERIN [Concomitant]
     Dosage: 100 MG, UNK
     Route: 042
     Dates: start: 20050420
  12. NEOSYNEPHRINE [Concomitant]
     Dosage: 10 MG, UNK
     Route: 042
     Dates: start: 20050420
  13. SUCCINYLCHOLINE CHLORIDE [Concomitant]
     Dosage: 200 MG, UNK
     Route: 042
     Dates: start: 20050420
  14. ACTOS [Concomitant]
     Dosage: 500 MG, QD
     Route: 048
  15. ATROPINE [Concomitant]
     Dosage: 0.4 MG/ML, UNK
     Route: 042
     Dates: start: 20050420
  16. LIPITOR [Concomitant]
     Dosage: 20 MG, HS
     Route: 048
  17. PAXIL [Concomitant]
     Dosage: 25 MG, QD
     Route: 048
  18. DIOVAN [Concomitant]
     Dosage: 100 MG, QD
     Route: 048
  19. SUFENTANIL CITRATE [Concomitant]
     Dosage: 250 MCG
     Route: 042
     Dates: start: 20050420
  20. PROTAMINE SULFATE [Concomitant]
     Dosage: 50MG; 250MG
     Route: 042
     Dates: start: 20050420
  21. VECURONIUM BROMIDE [Concomitant]
     Dosage: 10 MG, UNK
     Route: 042
     Dates: start: 20050420
  22. TRASYLOL [Suspect]
     Indication: CORONARY ARTERY BYPASS
  23. BUMEX [Concomitant]
     Dosage: 1 MG, QD
     Route: 048
  24. PHENYLEPHRINE HCL [Concomitant]
     Dosage: 10 MG, UNK
     Route: 042
     Dates: start: 20050420
  25. CEFUROXIME [Concomitant]
     Dosage: 1500 MG, UNK
     Route: 042
     Dates: start: 20050420
  26. INSULIN [Concomitant]
     Dosage: UNK
     Route: 042
     Dates: start: 20050420
  27. VALIUM [Concomitant]
     Dosage: 5 MG, HS
     Route: 048
  28. NITROGLYCERIN [Concomitant]
     Dosage: UNK UNK, PRN
     Route: 060
  29. PROPOFOL [Concomitant]
     Dosage: 500 MG, UNK
     Route: 042
     Dates: start: 20050420
  30. THIOPENTAL SODIUM [Concomitant]
     Dosage: 350 MG, UNK
     Route: 042
  31. THIOPENTAL SODIUM [Concomitant]
     Dosage: 350 MG, UNK
     Route: 042
  32. MIDAZOLAM HCL [Concomitant]
     Dosage: 10 MG, UNK
     Route: 042
     Dates: start: 20050420

REACTIONS (5)
  - RENAL INJURY [None]
  - INJURY [None]
  - PAIN [None]
  - RENAL FAILURE ACUTE [None]
  - RENAL FAILURE [None]
